FAERS Safety Report 9338172 (Version 1)
Quarter: 2013Q2

REPORT INFORMATION
  Report Type: Spontaneous
  Country: US (occurrence: US)
  Receive Date: 20130610
  Receipt Date: 20130610
  Transmission Date: 20140414
  Serious: Yes (Other)
  Sender: FDA-Public Use
  Company Number: US-009507513-1306USA002559

PATIENT
  Age: 49 Year
  Sex: Female

DRUGS (3)
  1. FOSAMAX [Suspect]
     Indication: OSTEOARTHRITIS
     Dosage: UNK, QW
     Route: 048
     Dates: start: 201111, end: 201112
  2. VITAMIN D (UNSPECIFIED) [Concomitant]
  3. ENALAPRIL MALEATE [Concomitant]

REACTIONS (2)
  - Urinary tract infection [Recovering/Resolving]
  - Abdominal pain upper [Recovering/Resolving]
